FAERS Safety Report 11972087 (Version 1)
Quarter: 2016Q1

REPORT INFORMATION
  Report Type: Spontaneous
  Country: FR (occurrence: FR)
  Receive Date: 20160128
  Receipt Date: 20160128
  Transmission Date: 20160526
  Serious: Yes (Death, Hospitalization)
  Sender: FDA-Public Use
  Company Number: FR-SA-2016SA013471

PATIENT
  Age: 82 Year
  Sex: Male

DRUGS (9)
  1. TAHOR [Concomitant]
     Active Substance: ATORVASTATIN CALCIUM
     Dates: end: 20151217
  2. LASILIX [Suspect]
     Active Substance: FUROSEMIDE
     Indication: ASCITES
     Route: 065
     Dates: start: 201506
  3. PERINDOPRIL [Suspect]
     Active Substance: PERINDOPRIL
     Indication: HYPOTENSION
     Route: 065
     Dates: start: 20120727, end: 20151217
  4. PLAVIX [Concomitant]
     Active Substance: CLOPIDOGREL BISULFATE
  5. EUPANTOL [Concomitant]
     Active Substance: PANTOPRAZOLE SODIUM
  6. MECIR [Concomitant]
     Active Substance: TAMSULOSIN HYDROCHLORIDE
     Dosage: DOSE: 0.4 MF
  7. LASILIX [Suspect]
     Active Substance: FUROSEMIDE
     Indication: ASCITES
     Route: 065
     Dates: start: 201510, end: 20151217
  8. DUPHALAC [Concomitant]
     Active Substance: LACTULOSE
  9. BISOPROLOL FUMARATE. [Suspect]
     Active Substance: BISOPROLOL FUMARATE
     Indication: HYPOTENSION
     Route: 065
     Dates: start: 20130905, end: 20151216

REACTIONS (2)
  - Acute kidney injury [Fatal]
  - Hypotension [Fatal]

NARRATIVE: CASE EVENT DATE: 201511
